FAERS Safety Report 14620415 (Version 1)
Quarter: 2018Q1

REPORT INFORMATION
  Report Type: Spontaneous
  Country: US (occurrence: US)
  Receive Date: 20180309
  Receipt Date: 20180309
  Transmission Date: 20180509
  Serious: Yes (Other)
  Sender: FDA-Public Use
  Company Number: US-ALLERGAN-1730454US

PATIENT
  Age: 7 Decade
  Sex: Male

DRUGS (1)
  1. OZURDEX [Suspect]
     Active Substance: DEXAMETHASONE
     Indication: DIABETIC RETINAL OEDEMA
     Dosage: 0.7 MG, SINGLE
     Route: 031
     Dates: start: 201706

REACTIONS (5)
  - Intraocular pressure increased [Unknown]
  - Eye inflammation [Unknown]
  - Device expulsion [Unknown]
  - Endophthalmitis [Unknown]
  - Product dosage form issue [Unknown]

NARRATIVE: CASE EVENT DATE: 201707
